FAERS Safety Report 5497606-8 (Version None)
Quarter: 2007Q4

REPORT INFORMATION
  Report Type: 
  Country: None (occurrence: None)
  Receive Date: 20071025
  Receipt Date: 20070102
  Transmission Date: 20080405
  Serious: No
  Sender: FDA-Public Use
  Company Number: A0631724A

PATIENT
  Age: 94 Year
  Sex: Female

DRUGS (14)
  1. ADVAIR DISKUS 100/50 [Suspect]
     Indication: CHRONIC OBSTRUCTIVE PULMONARY DISEASE
     Dosage: 2PUFF TWICE PER DAY
     Route: 055
     Dates: start: 20060301
  2. ANTIBIOTIC [Suspect]
  3. CLOPIDOGREL [Concomitant]
  4. NORVASC [Concomitant]
  5. OXYBUTYNIN CHLORIDE [Concomitant]
  6. TOPROL-XL [Concomitant]
  7. LEVOTHYROXINE SODIUM [Concomitant]
  8. PROMETHAZINE [Concomitant]
  9. WELCHOL [Concomitant]
  10. FUROSEMIDE [Concomitant]
  11. LISINOPRIL [Concomitant]
  12. PROTONIX [Concomitant]
  13. BENOXINATE [Concomitant]
  14. OXYGEN [Concomitant]

REACTIONS (4)
  - CANDIDIASIS [None]
  - CHAPPED LIPS [None]
  - PAIN [None]
  - TONGUE DISORDER [None]
